FAERS Safety Report 5149870-2 (Version None)
Quarter: 2006Q4

REPORT INFORMATION
  Report Type: 
  Country: None (occurrence: None)
  Receive Date: 20060918
  Receipt Date: 20051228
  Transmission Date: 20070319
  Serious: Yes (Hospitalization, Other)
  Sender: FDA-Public Use
  Company Number: US-JNJFOC-20060100230

PATIENT
  Age: 57 Year
  Sex: Female
  Weight: 58.0604 kg

DRUGS (6)
  1. TOPAMAX [Suspect]
     Indication: DRUG THERAPY
     Dosage: ORAL
     Route: 048
  2. ZOCOR [Concomitant]
  3. ZETIA [Concomitant]
  4. CLARINEX [Concomitant]
  5. SINGULAIR [Concomitant]
  6. KADIAN [Concomitant]

REACTIONS (2)
  - DEPRESSION [None]
  - WEIGHT DECREASED [None]
